FAERS Safety Report 12066940 (Version 2)
Quarter: 2016Q1

REPORT INFORMATION
  Report Type: Report from Study
  Country: US (occurrence: US)
  Receive Date: 20160211
  Receipt Date: 20160212
  Transmission Date: 20160526
  Serious: No
  Sender: FDA-Public Use
  Company Number: PHEH2016US002756

PATIENT
  Age: 16 Year
  Sex: Male

DRUGS (1)
  1. ILARIS [Suspect]
     Active Substance: CANAKINUMAB
     Indication: PRODUCT USED FOR UNKNOWN INDICATION
     Dosage: 150 MG, EVERY 2 MONTHS
     Route: 058

REACTIONS (3)
  - Inappropriate schedule of drug administration [Unknown]
  - Upper respiratory tract infection [Unknown]
  - Influenza [Unknown]

NARRATIVE: CASE EVENT DATE: 20160130
